FAERS Safety Report 7589654-9 (Version None)
Quarter: 2011Q3

REPORT INFORMATION
  Report Type: 
  Country: None (occurrence: None)
  Receive Date: 20110705
  Receipt Date: 20110621
  Transmission Date: 20111222
  Serious: Yes (Hospitalization)
  Sender: FDA-Public Use
  Company Number: US-JNJFOC-20110610238

PATIENT
  Sex: Female
  Weight: 49.9 kg

DRUGS (6)
  1. PREDNISONE [Concomitant]
     Indication: CROHN'S DISEASE
     Route: 048
     Dates: start: 20100601
  2. TEGRETOL [Concomitant]
     Indication: FACIAL NEURALGIA
     Dosage: AS NEEDED
     Route: 048
  3. METOPROLOL TARTRATE [Suspect]
     Route: 048
  4. METOPROLOL TARTRATE [Suspect]
     Indication: BLOOD PRESSURE
     Route: 048
     Dates: start: 20110401, end: 20110401
  5. REMICADE [Suspect]
     Indication: CROHN'S DISEASE
     Route: 042
     Dates: start: 20110301
  6. PAXIL [Concomitant]
     Indication: DEPRESSION
     Route: 048
     Dates: start: 20100601

REACTIONS (4)
  - DIZZINESS POSTURAL [None]
  - DYSPHONIA [None]
  - HYPERHIDROSIS [None]
  - ELECTROCARDIOGRAM ABNORMAL [None]
